FAERS Safety Report 15542707 (Version 2)
Quarter: 2019Q1

REPORT INFORMATION
  Report Type: Report from Study
  Country: US (occurrence: US)
  Receive Date: 20181023
  Receipt Date: 20190122
  Transmission Date: 20190417
  Serious: Yes (Other)
  Sender: FDA-Public Use
  Company Number: US-JNJFOC-20180425025

PATIENT
  Age: 79 Year
  Sex: Male

DRUGS (4)
  1. IMBRUVICA [Suspect]
     Active Substance: IBRUTINIB
     Indication: CHRONIC LYMPHOCYTIC LEUKAEMIA
     Route: 048
     Dates: start: 2018
  2. IMBRUVICA [Suspect]
     Active Substance: IBRUTINIB
     Indication: CHRONIC LYMPHOCYTIC LEUKAEMIA
     Route: 048
     Dates: end: 20180607
  3. IMBRUVICA [Suspect]
     Active Substance: IBRUTINIB
     Indication: ACUTE LYMPHOCYTIC LEUKAEMIA
     Route: 048
     Dates: end: 20180607
  4. IMBRUVICA [Suspect]
     Active Substance: IBRUTINIB
     Indication: ACUTE LYMPHOCYTIC LEUKAEMIA
     Route: 048
     Dates: start: 2018

REACTIONS (13)
  - Off label use [Unknown]
  - Product use in unapproved indication [Unknown]
  - Cough [Unknown]
  - Contusion [Unknown]
  - Skin atrophy [Unknown]
  - Nasopharyngitis [Unknown]
  - Balance disorder [Unknown]
  - Scratch [Unknown]
  - Fall [Unknown]
  - Skin fragility [Unknown]
  - Cataract [Unknown]
  - Haemorrhagic diathesis [Unknown]
  - Skin laceration [Unknown]

NARRATIVE: CASE EVENT DATE: 20180607
